FAERS Safety Report 13447620 (Version 1)
Quarter: 2017Q2

REPORT INFORMATION
  Report Type: Spontaneous
  Country: US (occurrence: US)
  Receive Date: 20170414
  Receipt Date: 20170414
  Transmission Date: 20170830
  Serious: No
  Sender: FDA-Public Use
  Company Number: None

PATIENT
  Age: 72 Year
  Sex: Female

DRUGS (4)
  1. IBRANCE [Suspect]
     Active Substance: PALBOCICLIB
     Indication: MAJOR DEPRESSION
  2. IBRANCE [Suspect]
     Active Substance: PALBOCICLIB
     Indication: BREAST CANCER FEMALE
  3. IBRANCE [Suspect]
     Active Substance: PALBOCICLIB
     Indication: ESSENTIAL HYPERTENSION
  4. IBRANCE [Suspect]
     Active Substance: PALBOCICLIB
     Indication: HYPERLIPIDAEMIA

REACTIONS (6)
  - Fall [None]
  - Hyperhidrosis [None]
  - Sticky skin [None]
  - Upper limb fracture [None]
  - Hot flush [None]
  - Lacrimation increased [None]

NARRATIVE: CASE EVENT DATE: 20170401
